FAERS Safety Report 21439377 (Version 1)
Quarter: 2022Q4

REPORT INFORMATION
  Report Type: Other
  Country: SE (occurrence: None)
  Receive Date: 20221011
  Receipt Date: 20221011
  Transmission Date: 20230113
  Serious: Yes (Hospitalization, Other)
  Sender: FDA-Public Use
  Company Number: SE-Navinta LLC-000293

PATIENT
  Age: 51 Year
  Sex: Female

DRUGS (1)
  1. TRIENTINE [Suspect]
     Active Substance: TRIENTINE
     Indication: Hepato-lenticular degeneration
     Dosage: 300 MG BID FOR 6 WEEKS INITIALLY.

REACTIONS (2)
  - Enterocolitis haemorrhagic [Recovered/Resolved]
  - Hepatic encephalopathy [Recovered/Resolved]
